FAERS Safety Report 11714527 (Version 1)
Quarter: 2015Q4

REPORT INFORMATION
  Report Type: Spontaneous
  Country: RU (occurrence: RU)
  Receive Date: 20151109
  Receipt Date: 20151109
  Transmission Date: 20160304
  Serious: Yes (Death, Hospitalization)
  Sender: FDA-Public Use
  Company Number: RU-ACTELION-A-CH2015-126239

PATIENT
  Age: 40 Year
  Sex: Female

DRUGS (10)
  1. TRACLEER [Suspect]
     Active Substance: BOSENTAN
     Indication: PULMONARY ARTERIAL HYPERTENSION
     Dosage: 125 MG, BID
     Route: 048
     Dates: start: 20090918
  2. DIUVER [Concomitant]
     Active Substance: TORSEMIDE
  3. VENTAVIS [Suspect]
     Active Substance: ILOPROST
     Indication: PULMONARY ARTERIAL HYPERTENSION
     Dosage: 2.5 ?G, 6-9 TIMES A DAY
     Route: 055
     Dates: start: 201104, end: 201207
  4. WARFARIN [Concomitant]
     Active Substance: WARFARIN
  5. VEROSPIRON [Concomitant]
     Active Substance: SPIRONOLACTONE
  6. PLAQUENIL [Concomitant]
     Active Substance: HYDROXYCHLOROQUINE SULFATE
  7. SILDENAFIL. [Concomitant]
     Active Substance: SILDENAFIL
     Indication: PULMONARY ARTERIAL HYPERTENSION
     Dosage: 200 MG, QD
     Dates: start: 200806
  8. PANANGIN [Concomitant]
     Active Substance: MAGNESIUM ASPARTATE\POTASSIUM ASPARTATE
  9. FRAXIPARINE [Concomitant]
     Active Substance: NADROPARIN CALCIUM
  10. TRACLEER [Suspect]
     Active Substance: BOSENTAN
     Dosage: 62.5 MG, BID
     Route: 048
     Dates: start: 20090821, end: 20090917

REACTIONS (14)
  - Concomitant disease aggravated [Fatal]
  - Oedema peripheral [Fatal]
  - Blood potassium decreased [Unknown]
  - Respiratory failure [Fatal]
  - Hypotension [Unknown]
  - Condition aggravated [Fatal]
  - Right ventricular failure [Fatal]
  - Pericardial effusion [Fatal]
  - Anuria [Recovered/Resolved]
  - Systemic inflammatory response syndrome [Recovered/Resolved]
  - Inhibitory drug interaction [Recovered/Resolved]
  - Atrial flutter [Unknown]
  - Venous thrombosis [Recovered/Resolved]
  - Pulmonary arterial hypertension [Fatal]

NARRATIVE: CASE EVENT DATE: 200909
